FAERS Safety Report 6457839-0 (Version None)
Quarter: 2009Q4

REPORT INFORMATION
  Report Type: 
  Country: None (occurrence: None)
  Receive Date: 20091125
  Receipt Date: 20091119
  Transmission Date: 20100525
  Serious: Yes (Life-Threatening, Hospitalization, Other)
  Sender: FDA-Public Use
  Company Number: GB-SANOFI-AVENTIS-A01200702322

PATIENT
  Age: 35 Year
  Sex: Female

DRUGS (2)
  1. OXALIPLATIN [Suspect]
     Route: 040
     Dates: start: 20070205, end: 20070205
  2. FLUOROURACIL [Suspect]
     Route: 041
     Dates: start: 20070205, end: 20070207

REACTIONS (7)
  - ARTERIOSPASM CORONARY [None]
  - ATRIAL FIBRILLATION [None]
  - CHEST PAIN [None]
  - ELECTROCARDIOGRAM ST SEGMENT ELEVATION [None]
  - HYPOTENSION [None]
  - MYOCARDITIS [None]
  - VENTRICULAR HYPOKINESIA [None]
